FAERS Safety Report 9812829 (Version 1)
Quarter: 2014Q1

REPORT INFORMATION
  Report Type: Spontaneous
  Country: US (occurrence: US)
  Receive Date: 20140113
  Receipt Date: 20140113
  Transmission Date: 20141002
  Serious: No
  Sender: FDA-Public Use
  Company Number: US-PFIZER INC-2014006855

PATIENT
  Sex: Male

DRUGS (3)
  1. VIAGRA [Suspect]
     Dosage: 25 MG, UNK
  2. VIAGRA [Suspect]
     Dosage: 50 MG, UNK
  3. VIAGRA [Suspect]
     Dosage: 75 MG, UNK

REACTIONS (5)
  - Headache [Unknown]
  - Flushing [Unknown]
  - Penis disorder [Unknown]
  - Spontaneous penile erection [Unknown]
  - Drug effect decreased [Unknown]
